FAERS Safety Report 7875786-4 (Version None)
Quarter: 2011Q4

REPORT INFORMATION
  Report Type: 
  Country: None (occurrence: None)
  Receive Date: 20111031
  Receipt Date: 20111018
  Transmission Date: 20120403
  Serious: Yes (Hospitalization)
  Sender: FDA-Public Use
  Company Number: DE-ROCHE-1007402

PATIENT
  Age: 45 Year

DRUGS (3)
  1. XOLAIR [Suspect]
     Indication: FOOD ALLERGY
  2. XOLAIR [Suspect]
     Indication: ASTHMA
     Route: 058
     Dates: start: 20110201, end: 20110801
  3. XOLAIR [Suspect]
     Indication: DERMATITIS
     Route: 058
     Dates: start: 20111002

REACTIONS (3)
  - DERMATITIS [None]
  - SERUM SICKNESS [None]
  - HEPATIC ENZYME INCREASED [None]
